FAERS Safety Report 12531945 (Version 2)
Quarter: 2016Q3

REPORT INFORMATION
  Report Type: Spontaneous
  Country: ZA (occurrence: ZA)
  Receive Date: 20160706
  Receipt Date: 20160809
  Transmission Date: 20161109
  Serious: Yes (Other)
  Sender: FDA-Public Use
  Company Number: ZA-GILEAD-2016-0221016

PATIENT
  Age: 35 Year
  Sex: Male
  Weight: 112 kg

DRUGS (1)
  1. TRUVADA [Suspect]
     Active Substance: EMTRICITABINE\TENOFOVIR DISOPROXIL FUMARATE
     Indication: PROPHYLAXIS AGAINST HIV INFECTION
     Route: 065

REACTIONS (3)
  - Bipolar disorder [Unknown]
  - Drug ineffective [Unknown]
  - HIV test positive [Unknown]

NARRATIVE: CASE EVENT DATE: 20150928
